FAERS Safety Report 6162878-3 (Version None)
Quarter: 2009Q2

REPORT INFORMATION
  Report Type: 
  Country: None (occurrence: None)
  Receive Date: 20090421
  Receipt Date: 20081217
  Transmission Date: 20091009
  Serious: No
  Sender: FDA-Public Use
  Company Number: BR-ASTRAZENECA-2008UW28368

PATIENT
  Age: 57 Year
  Sex: Male
  Weight: 75 kg

DRUGS (1)
  1. SELOZOK [Suspect]
     Indication: HYPERTENSION
     Route: 048
     Dates: start: 20081001

REACTIONS (3)
  - DYSPEPSIA [None]
  - LIBIDO DECREASED [None]
  - RESTLESSNESS [None]
